FAERS Safety Report 5314017-6 (Version None)
Quarter: 2007Q2

REPORT INFORMATION
  Report Type: 
  Country: None (occurrence: None)
  Receive Date: 20070501
  Receipt Date: 20070419
  Transmission Date: 20071010
  Serious: Yes (Disabling)
  Sender: FDA-Public Use
  Company Number: GB-ROCHE-489591

PATIENT
  Age: 50 Year
  Sex: Female

DRUGS (1)
  1. CELLCEPT [Suspect]
     Route: 048
     Dates: start: 20060131, end: 20061110

REACTIONS (2)
  - ALOPECIA AREATA [None]
  - ALOPECIA TOTALIS [None]
